FAERS Safety Report 23754516 (Version 2)
Quarter: 2024Q3

REPORT INFORMATION
  Report Type: Spontaneous
  Country: IL (occurrence: IL)
  Receive Date: 20240418
  Receipt Date: 20240722
  Transmission Date: 20241017
  Serious: Yes (Life-Threatening, Other)
  Sender: Y-MABS THERAPEUTICS
  Company Number: IL-Y-MABS THERAPEUTICS, INC.-SPO2024-IL-001541

PATIENT

DRUGS (4)
  1. DANYELZA [Suspect]
     Active Substance: NAXITAMAB-GQGK
     Indication: Product used for unknown indication
     Dosage: CYCLE 1, DOSE 2 (HITS DAY 4)
     Route: 042
     Dates: start: 20240324, end: 20240324
  2. GRANULOCYTE-MACROPHAGE COLONY-STIMULATING FACTOR [Concomitant]
     Active Substance: GRANULOCYTE-MACROPHAGE COLONY-STIMULATING FACTOR
  3. IRINOTECAN [Concomitant]
     Active Substance: IRINOTECAN
  4. TEMOZOLOMIDE [Concomitant]
     Active Substance: TEMOZOLOMIDE

REACTIONS (2)
  - Anaphylactic shock [Recovered/Resolved]
  - Off label use [Recovered/Resolved]
